FAERS Safety Report 8924813 (Version 2)
Quarter: 2012Q4

REPORT INFORMATION
  Report Type: 
  Country: CO (occurrence: CO)
  Receive Date: 20121126
  Receipt Date: 20121206
  Transmission Date: 20130627
  Serious: Yes (Hospitalization, Other)
  Sender: FDA-Public Use
  Company Number: CO-PFIZER INC-2012294886

PATIENT
  Age: 23 Year
  Sex: Female

DRUGS (5)
  1. LYRICA [Suspect]
     Indication: NEUROPATHY
     Dosage: 150 mg, 1x/day
     Route: 048
     Dates: start: 2011
  2. LYRICA [Suspect]
     Dosage: 450 mg, 1x/day
     Route: 048
  3. NEURONTIN [Concomitant]
     Indication: NEUROPATHY
     Dosage: 400 mg, 2x/day
     Route: 048
     Dates: start: 2011
  4. NEURONTIN [Concomitant]
     Dosage: 3 tablets of 400mg, 1x/day
     Route: 048
  5. ESOMEPRAZOLE [Concomitant]
     Dosage: UNK

REACTIONS (5)
  - Biliary cyst [Not Recovered/Not Resolved]
  - Back pain [Not Recovered/Not Resolved]
  - Headache [Not Recovered/Not Resolved]
  - Vomiting [Not Recovered/Not Resolved]
  - Abdominal pain upper [Not Recovered/Not Resolved]
